FAERS Safety Report 9172372 (Version 1)
Quarter: 2013Q1

REPORT INFORMATION
  Report Type: Spontaneous
  Country: NL (occurrence: NL)
  Receive Date: 20130319
  Receipt Date: 20130319
  Transmission Date: 20140127
  Serious: Yes (Other)
  Sender: FDA-Public Use
  Company Number: NL-PFIZER INC-2013089826

PATIENT
  Sex: Female

DRUGS (5)
  1. LYRICA [Suspect]
     Indication: NEURALGIA
     Dosage: 150 MG, 4X/DAY
     Dates: start: 201207
  2. RISPERDAL [Suspect]
     Indication: BORDERLINE PERSONALITY DISORDER
     Dosage: 3 MG, 1X/DAY
     Dates: start: 201104
  3. MIDAZOLAM [Concomitant]
     Indication: SLEEP DISORDER
     Dosage: 30 MG, 1X/DAY
     Dates: start: 201104
  4. AGOMELATINE [Concomitant]
     Indication: BORDERLINE PERSONALITY DISORDER
     Dosage: 50 MG, 1X/DAY
     Dates: start: 201104
  5. BIPERIDEN HYDROCHLORIDE [Concomitant]
     Indication: PARKINSONISM
     Dosage: 2 MG, 3X/DAY
     Dates: start: 201208

REACTIONS (2)
  - Restless legs syndrome [Not Recovered/Not Resolved]
  - Drug withdrawal syndrome [Not Recovered/Not Resolved]
